FAERS Safety Report 4485614-5 (Version None)
Quarter: 2004Q4

REPORT INFORMATION
  Report Type: 
  Country: None (occurrence: None)
  Receive Date: 20041026
  Receipt Date: 20041019
  Transmission Date: 20050328
  Serious: Yes (Hospitalization, Other)
  Sender: FDA-Public Use
  Company Number: BR-MERCK-0410BRA00403

PATIENT
  Age: 29 Year
  Sex: Female

DRUGS (2)
  1. VIOXX [Suspect]
     Indication: ABDOMINAL PAIN
     Route: 048
     Dates: start: 20040701, end: 20040701
  2. VIOXX [Suspect]
     Indication: PROLONGED PREGNANCY
     Route: 048
     Dates: start: 20040701, end: 20040701

REACTIONS (1)
  - APPENDICITIS [None]
